FAERS Safety Report 6794659-1 (Version None)
Quarter: 2010Q2

REPORT INFORMATION
  Report Type: 
  Country: None (occurrence: None)
  Receive Date: 20100624
  Receipt Date: 20100624
  Transmission Date: 20101027
  Serious: No
  Sender: FDA-Public Use
  Company Number: None

PATIENT
  Sex: Female
  Weight: 65 kg

DRUGS (1)
  1. MORPHINE SULFATE [Suspect]
     Indication: TOOTH EXTRACTION
     Dates: start: 20090528

REACTIONS (2)
  - ASPIRATION [None]
  - DEPRESSED LEVEL OF CONSCIOUSNESS [None]
